FAERS Safety Report 8681604 (Version 2)
Quarter: 2013Q4

REPORT INFORMATION
  Report Type: Spontaneous
  Country: FR (occurrence: FR)
  Receive Date: 20120725
  Receipt Date: 20131108
  Transmission Date: 20140711
  Serious: Yes (Congenital Anomaly)
  Sender: FDA-Public Use
  Company Number: FR-009507513-1207FRA006928

PATIENT
  Sex: Female
  Weight: .44 kg

DRUGS (1)
  1. NUVARING [Suspect]
     Indication: PRODUCT USED FOR UNKNOWN INDICATION
     Dosage: UNK
     Route: 064
     Dates: start: 2008, end: 201203

REACTIONS (2)
  - Congenital cardiovascular anomaly [Recovered/Resolved]
  - Foetal exposure during pregnancy [Recovered/Resolved]
